FAERS Safety Report 25219849 (Version 5)
Quarter: 2025Q4

REPORT INFORMATION
  Report Type: Spontaneous
  Country: US (occurrence: US)
  Receive Date: 20250421
  Receipt Date: 20251022
  Transmission Date: 20260118
  Serious: No
  Sender: PFIZER
  Company Number: US-PFIZER INC-202500078793

PATIENT
  Age: 15 Year
  Sex: Female
  Weight: 35.834 kg

DRUGS (2)
  1. GENOTROPIN [Suspect]
     Active Substance: SOMATROPIN
     Indication: Growth failure
     Dosage: 2.2MG EVERY DAY ADMINISTERED IN LEGS
  2. ESTRADIOL [Concomitant]
     Active Substance: ESTRADIOL
     Indication: Ovarian disorder
     Dosage: 0.025 MG, DAILY; HORMONE PATCH

REACTIONS (4)
  - Drug dose omission by device [Unknown]
  - Device difficult to use [Unknown]
  - Product preparation issue [Unknown]
  - Device information output issue [Unknown]

NARRATIVE: CASE EVENT DATE: 20250401
